FAERS Safety Report 10145811 (Version 1)
Quarter: 2014Q2

REPORT INFORMATION
  Report Type: Spontaneous
  Country: US (occurrence: US)
  Receive Date: 20140501
  Receipt Date: 20140501
  Transmission Date: 20141212
  Serious: No
  Sender: FDA-Public Use
  Company Number: US-ABBVIE-13P-163-1152312-00

PATIENT
  Age: 81 Year
  Sex: Female
  Weight: 51.3 kg

DRUGS (2)
  1. CREON [Suspect]
     Indication: IMPAIRED GASTRIC EMPTYING
     Dosage: 1 WITH EACH OF HER 3 MEALS
     Route: 048
     Dates: start: 20130909
  2. OMEPRAZOLE [Concomitant]
     Indication: GASTROOESOPHAGEAL REFLUX DISEASE

REACTIONS (2)
  - Alopecia [Not Recovered/Not Resolved]
  - Off label use [Unknown]
